FAERS Safety Report 10873258 (Version 2)
Quarter: 2015Q1

REPORT INFORMATION
  Report Type: Spontaneous
  Country: CO (occurrence: CO)
  Receive Date: 20150227
  Receipt Date: 20150227
  Transmission Date: 20150721
  Serious: Yes (Other)
  Sender: FDA-Public Use
  Company Number: CO-JNJFOC-20150211061

PATIENT

DRUGS (1)
  1. STELARA [Suspect]
     Active Substance: USTEKINUMAB
     Indication: PSORIASIS
     Dosage: CURRENTLY ON THE FOURTH ADMINISTRATION
     Route: 058

REACTIONS (2)
  - Antinuclear antibody increased [Unknown]
  - Blood bilirubin increased [Unknown]
